FAERS Safety Report 5327571-5 (Version None)
Quarter: 2007Q2

REPORT INFORMATION
  Report Type: 
  Country: None (occurrence: None)
  Receive Date: 20070517
  Receipt Date: 20070112
  Transmission Date: 20071010
  Serious: Yes (Hospitalization)
  Sender: FDA-Public Use
  Company Number: US-JNJFOC-20070104194

PATIENT
  Age: 42 Year
  Sex: Female

DRUGS (8)
  1. TRAMADOL HCL [Suspect]
     Indication: DRUG USE FOR UNKNOWN INDICATION
  2. CYCLOBENZAPRINE HCL [Suspect]
     Indication: DRUG USE FOR UNKNOWN INDICATION
     Route: 065
  3. ASPIRIN [Suspect]
     Indication: INTENTIONAL OVERDOSE
     Route: 065
  4. BENZODIAZEPINE [Suspect]
     Indication: INTENTIONAL OVERDOSE
     Route: 065
  5. DIURETIC [Suspect]
     Indication: INTENTIONAL OVERDOSE
     Route: 065
  6. ATYPICAL ANTIPSYCHOTIC [Suspect]
     Indication: INTENTIONAL OVERDOSE
     Route: 065
  7. ASCORBIC ACID [Suspect]
     Indication: INTENTIONAL OVERDOSE
     Route: 065
  8. FABRIC REFRESHER [Suspect]
     Indication: INTENTIONAL OVERDOSE
     Route: 065

REACTIONS (5)
  - ANTICHOLINERGIC SYNDROME [None]
  - CONVULSION [None]
  - MULTIPLE DRUG OVERDOSE INTENTIONAL [None]
  - POISONING DELIBERATE [None]
  - VOMITING [None]
